FAERS Safety Report 4526488-3 (Version None)
Quarter: 2004Q4

REPORT INFORMATION
  Report Type: 
  Country: None (occurrence: None)
  Receive Date: 20041214
  Receipt Date: 20041209
  Transmission Date: 20050328
  Serious: Yes (Life-Threatening, Hospitalization)
  Sender: FDA-Public Use
  Company Number: ES-MERCK-0412ESP00020

PATIENT
  Age: 58 Year
  Sex: Male
  Weight: 69 kg

DRUGS (3)
  1. VIOXX [Suspect]
     Indication: INTERVERTEBRAL DISC DISPLACEMENT
     Route: 048
     Dates: start: 20020101, end: 20031030
  2. TOPIRAMATE [Suspect]
     Indication: MIGRAINE
     Route: 048
     Dates: start: 20010301, end: 20031030
  3. LORNOXICAM [Concomitant]
     Indication: INTERVERTEBRAL DISC DISPLACEMENT
     Route: 048
     Dates: start: 20021214, end: 20030211

REACTIONS (1)
  - MYOCARDIAL INFARCTION [None]
